FAERS Safety Report 13129710 (Version 1)
Quarter: 2017Q1

REPORT INFORMATION
  Report Type: Spontaneous
  Country: US (occurrence: US)
  Receive Date: 20170119
  Receipt Date: 20170119
  Transmission Date: 20170428
  Serious: No
  Sender: FDA-Public Use
  Company Number: US-PFIZER INC-2016482700

PATIENT
  Age: 71 Year
  Sex: Female

DRUGS (16)
  1. PROVENTIL HFA [Concomitant]
     Active Substance: ALBUTEROL SULFATE
     Indication: WHEEZING
     Dosage: UNK UNK, AS NEEDED (90 MCG/ACTUATION INHALER) (2 PUFFS INTO THE LUNGS EVERY 6 (SIX) HOURS AS NEEDED
     Route: 055
  2. ATROVENT [Concomitant]
     Active Substance: IPRATROPIUM BROMIDE
     Dosage: 2 UNK, 4X/DAY (2 SPRAYS BY NASAL ROUTE 4 (FOUR) TIMES A DAY.)
     Route: 055
  3. ATROVENT [Concomitant]
     Active Substance: IPRATROPIUM BROMIDE
     Dosage: 2 DF, 3X/DAY (TAKE 2 SPRAY IN THE NASAL 3 TIMES A DAY)
  4. BACILLUS COAGULANS [Concomitant]
     Active Substance: BACILLUS COAGULANS
     Dosage: 250 MG, DAILY (BACILLUS COAGULANS-INULIN 1 BILLION-250 CELL-MG CAP)
     Route: 048
  5. DELSYM COUGH+ CHEST CONGESTION DM [Concomitant]
     Dosage: 10 ML, AS NEEDED (DEXTROMETHORPHAN HYDROBROMIDE: 5MG, GUAIFENESIN: 100 MG/5 ML )
     Route: 048
  6. ADVIL [Concomitant]
     Active Substance: IBUPROFEN
     Indication: PAIN
     Dosage: 600 MG, AS NEEDED
     Route: 048
  7. TEMOVATE [Concomitant]
     Active Substance: CLOBETASOL PROPIONATE
     Dosage: UNK UNK, 2X/DAY
     Route: 061
  8. LASIX [Concomitant]
     Active Substance: FUROSEMIDE
     Dosage: 20 MG, DAILY
     Route: 048
  9. COZAAR [Concomitant]
     Active Substance: LOSARTAN POTASSIUM
     Dosage: 100 MG, DAILY
     Route: 048
  10. SUTENT [Suspect]
     Active Substance: SUNITINIB MALATE
     Indication: LUNG ADENOCARCINOMA METASTATIC
     Dosage: 37.5 MG, CYCLIC (28 FOR DAYS THEN 14 DAYS OFF; REFILL: 11)
     Route: 048
  11. MAGNESIUM [Concomitant]
     Active Substance: MAGNESIUM
     Dosage: 250 MG, 2X/DAY
     Route: 048
  12. VENTOLIN HFA [Concomitant]
     Active Substance: ALBUTEROL SULFATE
     Indication: WHEEZING
     Dosage: UNK UNK, AS NEEDED (90 MCG/ACTUATION INHALER) (2 PUFFS INTO THE LUNGS EVERY 6 (SIX) HOURS AS NEEDED)
     Route: 055
  13. CATAPRES [Concomitant]
     Active Substance: CLONIDINE HYDROCHLORIDE
     Dosage: 0.2 MG, 2X/DAY
     Route: 048
  14. MOTRIN [Concomitant]
     Active Substance: IBUPROFEN
     Indication: PAIN
     Dosage: 600 MG, AS NEEDED
     Route: 048
  15. MUCINEX DM [Concomitant]
     Active Substance: DEXTROMETHORPHAN HYDROBROMIDE\GUAIFENESIN
     Dosage: UNK UNK, 2X/DAY (DEXTROMETHORPHAN HYDROBROMIDE: 30 MG, GUAIFENESIN: 600 MG)
     Route: 048
  16. CALCIUM CARBONATE AND VITAMIN D [Concomitant]
     Active Substance: CALCIUM CARBONATE\VITAMIN D
     Dosage: 1 DF, 2X/DAY(CALCIUM CARBONATE: 1,250 MG, COLECALCIFEROL: 400 UNITS)(2 (TWO) TIMES A DAY WITH MEALS)
     Route: 048

REACTIONS (2)
  - Glossodynia [Unknown]
  - Product use issue [Unknown]
